FAERS Safety Report 20030671 (Version 1)
Quarter: 2021Q4

REPORT INFORMATION
  Report Type: Spontaneous
  Country: CA (occurrence: CA)
  Receive Date: 20211103
  Receipt Date: 20211103
  Transmission Date: 20220303
  Serious: Yes (Death, Hospitalization, Other)
  Sender: FDA-Public Use
  Company Number: CA-TEVA-2021-CA-1971572

PATIENT
  Age: 24 Year
  Sex: Female

DRUGS (3)
  1. ACETAMINOPHEN [Suspect]
     Active Substance: ACETAMINOPHEN
     Indication: Product used for unknown indication
     Route: 048
  2. GABAPENTIN [Suspect]
     Active Substance: GABAPENTIN
     Indication: Product used for unknown indication
     Route: 048
  3. MORPHINE [Suspect]
     Active Substance: MORPHINE
     Indication: Product used for unknown indication
     Route: 048

REACTIONS (11)
  - Acute hepatic failure [Fatal]
  - Brain oedema [Fatal]
  - Coagulopathy [Fatal]
  - Death [Fatal]
  - Depressed level of consciousness [Fatal]
  - Encephalopathy [Fatal]
  - Hypoglycaemia [Fatal]
  - Lactic acidosis [Fatal]
  - Mental status changes [Fatal]
  - Analgesic drug level increased [Fatal]
  - Overdose [Fatal]
